FAERS Safety Report 19111552 (Version 1)
Quarter: 2021Q2

REPORT INFORMATION
  Report Type: Spontaneous
  Country: US (occurrence: US)
  Receive Date: 20210409
  Receipt Date: 20210409
  Transmission Date: 20210717
  Serious: Yes (Hospitalization)
  Sender: FDA-Public Use
  Company Number: None

PATIENT
  Age: 20 Year
  Sex: Female
  Weight: 60.2 kg

DRUGS (7)
  1. MERCAPTOPURINE 60 MG [Suspect]
     Active Substance: MERCAPTOPURINE
     Dates: end: 20210315
  2. METHOTREXATE 60 MG [Suspect]
     Active Substance: METHOTREXATE
     Dates: end: 20210315
  3. VINCRISTINE SULFATE 4 MG [Suspect]
     Active Substance: VINCRISTINE SULFATE
     Dates: end: 20210315
  4. CYCLOPHOSPHAMIDE 1720 MG [Suspect]
     Active Substance: CYCLOPHOSPHAMIDE
     Dates: end: 20210222
  5. CYTARABINE 1032 MG [Suspect]
     Active Substance: CYTARABINE
     Dates: end: 20210401
  6. ONCASPAR [Suspect]
     Active Substance: PEGASPARGASE
     Dates: end: 20210308
  7. RITUXIMAB (MOAB C2B8 ANTI CD20, CHIMERIC) 1800 MG [Suspect]
     Active Substance: RITUXIMAB
     Dates: end: 20210329

REACTIONS (4)
  - Nausea [None]
  - Decreased appetite [None]
  - Vomiting [None]
  - Extrapyramidal disorder [None]

NARRATIVE: CASE EVENT DATE: 20210402
